FAERS Safety Report 17226826 (Version 1)
Quarter: 2020Q1

REPORT INFORMATION
  Report Type: Spontaneous
  Country: SK (occurrence: SK)
  Receive Date: 20200102
  Receipt Date: 20200102
  Transmission Date: 20200409
  Serious: Yes (Disabling)
  Sender: FDA-Public Use
  Company Number: SK-BEH-2019106701

PATIENT
  Age: 31 Year
  Sex: Female
  Weight: 54.3 kg

DRUGS (36)
  1. HYDROCORTISONE. [Suspect]
     Active Substance: HYDROCORTISONE
     Indication: SYSTEMIC LUPUS ERYTHEMATOSUS
     Dosage: 400 MILLIGRAM, QD
     Route: 042
     Dates: start: 20180303, end: 20180309
  2. METHYLPREDNISOLONE. [Suspect]
     Active Substance: METHYLPREDNISOLONE
     Dosage: 250 MILLIGRAM, QD
     Route: 042
     Dates: start: 20180505, end: 20180509
  3. POTASSIUM CHLORIDE. [Suspect]
     Active Substance: POTASSIUM CHLORIDE
     Indication: HYPOKALAEMIA
     Dosage: 600 MILLIGRAM, TID
     Route: 048
     Dates: start: 20180314
  4. METHYLPREDNISOLONE. [Suspect]
     Active Substance: METHYLPREDNISOLONE
     Indication: SYSTEMIC LUPUS ERYTHEMATOSUS
     Dosage: 250 MILLIGRAM, QD
     Route: 042
     Dates: start: 20180221, end: 20180223
  5. VULMIZOLIN [Suspect]
     Active Substance: CEFAZOLIN SODIUM
     Indication: PROPHYLAXIS
     Dosage: 1 GRAM, TID
     Route: 042
     Dates: start: 20180501, end: 20180511
  6. ORNIDAZOLE [Suspect]
     Active Substance: ORNIDAZOLE
     Dosage: 500 MILLIGRAM, BID
     Route: 048
     Dates: start: 20180501, end: 20180510
  7. FLUCONAZOLE. [Suspect]
     Active Substance: FLUCONAZOLE
     Dosage: 100 MILLIGRAM, QD
     Route: 042
     Dates: start: 20180227, end: 20180320
  8. CEFOTAXIME [Suspect]
     Active Substance: CEFOTAXIME SODIUM
     Dosage: 1 GRAM, TID
     Route: 042
     Dates: start: 20180412, end: 20180427
  9. CALCIUM CARBONATE. [Suspect]
     Active Substance: CALCIUM CARBONATE
     Indication: HYPOCALCAEMIA
     Dosage: 500 MILLIGRAM, BID
     Route: 048
     Dates: start: 20180223, end: 20180514
  10. DEXAMETHASONE. [Suspect]
     Active Substance: DEXAMETHASONE
     Dosage: 4 MILLIGRAM, QD
     Route: 042
     Dates: start: 20180309, end: 20190504
  11. FLUCONAZOLE. [Suspect]
     Active Substance: FLUCONAZOLE
     Indication: PYREXIA
     Dosage: 100 MILLIGRAM, QD
     Route: 048
     Dates: start: 20180227, end: 20180320
  12. ETAMSYLATE [Suspect]
     Active Substance: ETHAMSYLATE
     Indication: THROMBOCYTOPENIA
     Dosage: 500 MILLIGRAM, TID
     Route: 042
     Dates: start: 20180222, end: 20180413
  13. OMEPRAZOLE. [Suspect]
     Active Substance: OMEPRAZOLE
     Indication: PROPHYLAXIS
     Dosage: 20 MILLIGRAM, BID
     Route: 048
     Dates: start: 20180222
  14. PRIVIGEN [Suspect]
     Active Substance: HUMAN IMMUNOGLOBULIN G
     Indication: SYSTEMIC LUPUS ERYTHEMATOSUS
     Dosage: 60 GRAM, TOT
     Route: 042
     Dates: start: 20180327, end: 20180329
  15. BISULEPIN [Suspect]
     Active Substance: BISULEPIN
     Indication: ALLERGY PROPHYLAXIS
     Dosage: 1 MILLIGRAM
     Route: 042
     Dates: start: 20180327, end: 20180327
  16. PREDNISONE. [Suspect]
     Active Substance: PREDNISONE
     Dosage: 20-30 MG/24 H
     Route: 048
     Dates: start: 20180509, end: 20180514
  17. BISOPROLOL FUMARATE. [Suspect]
     Active Substance: BISOPROLOL FUMARATE
     Indication: TACHYCARDIA
     Dosage: 2.5 MILLIGRAM, QD
     Route: 048
     Dates: start: 20180223, end: 20180327
  18. AMINOMETHYLBENZOIC ACID [Suspect]
     Active Substance: AMINOMETHYLBENZOIC ACID
     Indication: HAEMORRHAGE
     Dosage: 50 MILLIGRAM, TID
     Route: 042
     Dates: start: 20180227, end: 20180311
  19. NADROPARINE [Suspect]
     Active Substance: NADROPARIN
     Indication: STICKY PLATELET SYNDROME
     Dosage: 0.3 MILLILITER, QD
     Route: 058
     Dates: start: 20180222, end: 20180226
  20. ALBUMIN [Suspect]
     Active Substance: ALBUMIN HUMAN
     Indication: HYPOPROTEINAEMIA
     Dosage: 20 GRAM, QD
     Route: 042
     Dates: start: 20180327, end: 20180329
  21. PREDNISONE. [Suspect]
     Active Substance: PREDNISONE
     Indication: SYSTEMIC LUPUS ERYTHEMATOSUS
     Dosage: 20-30 MG/24 H
     Route: 048
     Dates: start: 20180222, end: 20180227
  22. PENICILLIN G [BENZYLPENICILLIN SODIUM] [Suspect]
     Active Substance: PENICILLIN G SODIUM
     Indication: URINARY TRACT INFECTION
     Dosage: 5 MILLILITER, QID
     Route: 042
     Dates: start: 20180224, end: 20180308
  23. CEFIXIME. [Suspect]
     Active Substance: CEFIXIME
     Dosage: 400 MILLIGRAM, BID
     Route: 048
     Dates: start: 20180501, end: 20180514
  24. CEFOTAXIME [Suspect]
     Active Substance: CEFOTAXIME SODIUM
     Indication: URINARY TRACT INFECTION
     Dosage: 1 GRAM, TID
     Route: 042
     Dates: start: 20180319, end: 20180329
  25. PARACETAMOL [Suspect]
     Active Substance: ACETAMINOPHEN
     Indication: PAIN
     Dosage: 500 MILLIGRAM, PRN
     Route: 048
     Dates: start: 20180222, end: 20180403
  26. VITAMIN D3 [Suspect]
     Active Substance: CHOLECALCIFEROL
     Indication: PROPHYLAXIS
     Dosage: 1500 INTERNATIONAL UNIT, QD
     Route: 048
     Dates: start: 20180222
  27. VITAMIN B C COMPLEX [Suspect]
     Active Substance: ASCORBIC ACID\NIACINAMIDE\PYRIDOXINE\RIBOFLAVIN\THIAMINE
     Indication: PROPHYLAXIS
     Dosage: UNK
     Route: 048
     Dates: start: 20180326, end: 20180514
  28. FLEBOGAMMA DIF [Suspect]
     Active Substance: HUMAN IMMUNOGLOBULIN G
     Indication: SYSTEMIC LUPUS ERYTHEMATOSUS
     Dosage: UNK
     Route: 042
     Dates: start: 20180423, end: 20180425
  29. PRIVIGEN [Suspect]
     Active Substance: HUMAN IMMUNOGLOBULIN G
     Dosage: UNK
     Route: 042
  30. DEXAMETHASONE. [Suspect]
     Active Substance: DEXAMETHASONE
     Indication: SYSTEMIC LUPUS ERYTHEMATOSUS
     Dosage: 16 MILLIGRAM, QD
     Route: 042
     Dates: start: 20180228, end: 20180302
  31. METOPROLOL TARTRATE. [Suspect]
     Active Substance: METOPROLOL TARTRATE
     Indication: TACHYCARDIA
     Dosage: 25 MILLIGRAM, BID
     Route: 048
     Dates: start: 20180511
  32. HYDROXYCHLOROQUINE [Suspect]
     Active Substance: HYDROXYCHLOROQUINE
     Dosage: 200 MILLIGRAM /12-24H
     Route: 048
     Dates: start: 20180222
  33. FOLIC ACID. [Suspect]
     Active Substance: FOLIC ACID
     Indication: PROPHYLAXIS
     Dosage: 10 MILLIGRAM, BID
     Route: 048
     Dates: start: 20180222
  34. MAGNESIUM LACTATE [Suspect]
     Active Substance: MAGNESIUM LACTATE
     Indication: HYPOMAGNESAEMIA
     Dosage: 500 MILLIGRAM, BID
     Route: 048
     Dates: start: 20180321, end: 20180405
  35. VITAMIN K [Suspect]
     Active Substance: PHYTONADIONE
     Indication: HAEMORRHAGE
     Dosage: 10 MILLIGRAM, TID
     Route: 042
     Dates: start: 20180227, end: 20180309
  36. PARACETAMOL [Suspect]
     Active Substance: ACETAMINOPHEN
     Indication: PYREXIA

REACTIONS (3)
  - No adverse event [Unknown]
  - Product use in unapproved indication [Unknown]
  - Uterine hypotonus [Recovered/Resolved]

NARRATIVE: CASE EVENT DATE: 20180504
